FAERS Safety Report 8330155-8 (Version None)
Quarter: 2012Q2

REPORT INFORMATION
  Report Type: 
  Country: None (occurrence: None)
  Receive Date: 20120502
  Receipt Date: 20120423
  Transmission Date: 20120825
  Serious: Yes (Death, Hospitalization)
  Sender: FDA-Public Use
  Company Number: AU-GENZYME-POMP-1002141

PATIENT
  Sex: Female

DRUGS (21)
  1. PULMICORT [Concomitant]
     Indication: PRODUCT USED FOR UNKNOWN INDICATION
     Dosage: 2 PUFFS, BID
     Route: 055
     Dates: start: 20070101
  2. ECHINACEA [Concomitant]
     Indication: MEDICAL DIET
     Dosage: 2 TABLETS, QD
     Route: 048
     Dates: start: 20030101
  3. NEULACTIL [Concomitant]
     Indication: ANXIETY
     Dosage: 2.5 MG, QD
     Dates: start: 20040101
  4. PANTOPRAZOLE [Concomitant]
     Indication: GASTROOESOPHAGEAL REFLUX DISEASE
     Dosage: 40 MG, QD
     Dates: start: 20020101
  5. LOVAZA [Concomitant]
     Indication: MEDICAL DIET
     Dosage: 1000 MG, QD
     Dates: start: 20050101
  6. MYOZYME [Suspect]
     Indication: GLYCOGEN STORAGE DISEASE TYPE II
     Dosage: 1700 MG, Q2W
     Route: 042
     Dates: start: 20060112
  7. NILSTAT [Concomitant]
     Indication: CANDIDIASIS
     Dosage: 2 TDS, PRN
     Dates: start: 20070101
  8. MULTI-VITAMIN [Concomitant]
     Indication: MEDICAL DIET
     Dosage: 1 CAP, QD
     Dates: start: 20050101
  9. VITAMIN E [Concomitant]
     Indication: MEDICAL DIET
     Dosage: 1000 IU, QD
     Dates: start: 19800101
  10. VENTOLIN [Concomitant]
     Indication: ASTHENIA
     Dosage: 2 PUFFS, QID
     Route: 055
     Dates: start: 19980101
  11. ZOLEDRONIC [Concomitant]
     Indication: OSTEOPOROSIS
     Dosage: 5 MG, YEARLY
     Dates: start: 20050101
  12. NITROGLYCERIN [Concomitant]
     Indication: CHEST PAIN
     Dosage: 600 MCG, PRN
     Dates: start: 20070101
  13. SOFRADEX [Concomitant]
     Indication: PRODUCT USED FOR UNKNOWN INDICATION
     Dosage: 1 DROP, QID
     Dates: start: 20070101
  14. GARLIC [Concomitant]
     Indication: MEDICAL DIET
     Dosage: 1000 MG, QD
     Dates: start: 19800101
  15. RHINOCORT [Concomitant]
     Indication: NASAL CONGESTION
     Dosage: 1 PUFF, PRN
     Route: 055
     Dates: start: 19980101
  16. CITALOPRAM HYDROBROMIDE [Concomitant]
     Indication: DEPRESSION
     Dosage: 40 MG, QD
     Dates: start: 20040101
  17. LASIX [Concomitant]
     Indication: COR PULMONALE
     Dosage: 20 MG, 3X/W
     Dates: start: 20050101
  18. ALDACTONE [Concomitant]
     Indication: COR PULMONALE
     Dosage: 25 MG, QD
     Dates: start: 20030101
  19. COLOXYL WITH SENNA [Concomitant]
     Indication: CONSTIPATION
     Dosage: 2 TABLETS, 3X/W
     Route: 048
     Dates: start: 20000101
  20. SENNA LAX [Concomitant]
     Indication: CONSTIPATION
     Dosage: 1 TABLET, 3X/W
     Route: 048
     Dates: start: 20000101
  21. VITAMIN D [Concomitant]
     Indication: OSTEOPOROSIS
     Dosage: 50000 IU, Q4W
     Dates: start: 20080101

REACTIONS (2)
  - LUNG INFECTION [None]
  - ASPIRATION [None]
